FAERS Safety Report 4641638-6 (Version None)
Quarter: 2005Q2

REPORT INFORMATION
  Report Type: 
  Country: None (occurrence: None)
  Receive Date: 20050420
  Receipt Date: 20050405
  Transmission Date: 20051028
  Serious: Yes (Death, Congenital Anomaly)
  Sender: FDA-Public Use
  Company Number: WAES 0504USA01115

PATIENT
  Sex: Female

DRUGS (1)
  1. PEPCID [Suspect]
     Dosage: PO
     Route: 048

REACTIONS (8)
  - ABORTION INDUCED [None]
  - ANENCEPHALY [None]
  - CONGENITAL ANOMALY [None]
  - DRUG EXPOSURE DURING PREGNANCY [None]
  - HYDROCEPHALUS [None]
  - LIMB HYPOPLASIA CONGENITAL [None]
  - NEURAL TUBE DEFECT [None]
  - SPINA BIFIDA [None]
